FAERS Safety Report 10594859 (Version 1)
Quarter: 2014Q4

REPORT INFORMATION
  Report Type: Report from Study
  Country: CA (occurrence: CA)
  Receive Date: 20141120
  Receipt Date: 20141120
  Transmission Date: 20150529
  Serious: Yes (Other)
  Sender: FDA-Public Use
  Company Number: CA-AMGEN-CANSL2014088552

PATIENT
  Age: 71 Year
  Sex: Female

DRUGS (1)
  1. PROLIA [Suspect]
     Active Substance: DENOSUMAB
     Indication: OSTEOPOROSIS POSTMENOPAUSAL
     Dosage: 60 MG/ML, UNK
     Route: 065
     Dates: start: 20120301

REACTIONS (5)
  - Acne [Not Recovered/Not Resolved]
  - Pain in extremity [Not Recovered/Not Resolved]
  - Fatigue [Not Recovered/Not Resolved]
  - Cataract [Not Recovered/Not Resolved]
  - Headache [Not Recovered/Not Resolved]
